FAERS Safety Report 16961227 (Version 2)
Quarter: 2019Q4

REPORT INFORMATION
  Report Type: Spontaneous
  Country: US (occurrence: US)
  Receive Date: 20191025
  Receipt Date: 20191206
  Transmission Date: 20200122
  Serious: No
  Sender: FDA-Public Use
  Company Number: US-ENDO PHARMACEUTICALS INC-2019-109049

PATIENT
  Age: 70 Year
  Sex: Male
  Weight: 99.77 kg

DRUGS (2)
  1. XIAFLEX [Suspect]
     Active Substance: COLLAGENASE CLOSTRIDIUM HISTOLYTICUM
     Indication: DUPUYTREN^S CONTRACTURE
     Dosage: 0.29 ML, SINGLE
     Route: 026
     Dates: start: 20190919, end: 20190920
  2. XIAFLEX [Suspect]
     Active Substance: COLLAGENASE CLOSTRIDIUM HISTOLYTICUM
     Dosage: 0.29 ML, UNKNOWN
     Route: 026
     Dates: start: 2019

REACTIONS (2)
  - Contusion [Unknown]
  - Lymphangitis [Recovered/Resolved]

NARRATIVE: CASE EVENT DATE: 201909
